FAERS Safety Report 6914589-1 (Version None)
Quarter: 2010Q3

REPORT INFORMATION
  Report Type: 
  Country: None (occurrence: None)
  Receive Date: 20100809
  Receipt Date: 20100729
  Transmission Date: 20110219
  Serious: Yes (Other)
  Sender: FDA-Public Use
  Company Number: US-JNJFOC-20100800982

PATIENT
  Age: 66 Year
  Sex: Male

DRUGS (8)
  1. LEUPROLIDE ACETATE [Suspect]
     Indication: PROSTATE CANCER
     Route: 065
  2. LEUPROLIDE ACETATE [Suspect]
     Route: 065
  3. BICALUTAMIDE [Suspect]
     Indication: PROSTATE CANCER
     Route: 065
  4. FINASTERIDE [Suspect]
     Indication: PROSTATE CANCER
     Route: 065
  5. DOCETAXEL [Suspect]
     Indication: PROSTATE CANCER
     Route: 065
  6. DOCETAXEL [Suspect]
     Route: 065
  7. GRANULOCYTE COLONY STIMULATING FACTOR [Suspect]
     Indication: PROSTATE CANCER
     Route: 065
  8. RADIOTHERAPY [Suspect]
     Indication: PROSTATE CANCER
     Route: 065

REACTIONS (2)
  - DISEASE PROGRESSION [None]
  - DRUG INEFFECTIVE [None]
